FAERS Safety Report 10220618 (Version 1)
Quarter: 2014Q2

REPORT INFORMATION
  Report Type: Spontaneous
  Country: US (occurrence: US)
  Receive Date: 20140606
  Receipt Date: 20140606
  Transmission Date: 20141212
  Serious: No
  Sender: FDA-Public Use
  Company Number: US-ASTRAZENECA-2014SE35863

PATIENT
  Sex: Female

DRUGS (6)
  1. SEROQUEL [Suspect]
     Route: 048
  2. NORVASC [Suspect]
     Route: 048
     Dates: start: 201205
  3. NORVASC [Suspect]
     Dosage: GENERIC 25 MG DAILY
     Route: 065
  4. TRIAM/HCTZ [Concomitant]
     Dosage: 37.5/25 MG, DAILY
  5. ALPRAZOLAM [Concomitant]
  6. ESTRADIOL [Concomitant]

REACTIONS (5)
  - Chest discomfort [Unknown]
  - Dysgeusia [Unknown]
  - Drug hypersensitivity [Unknown]
  - Dyspepsia [Unknown]
  - Drug dose omission [Unknown]
